FAERS Safety Report 9788231 (Version 2)
Quarter: 2013Q4

REPORT INFORMATION
  Report Type: Spontaneous
  Country: GB (occurrence: GB)
  Receive Date: 20131230
  Receipt Date: 20131230
  Transmission Date: 20140711
  Serious: Yes (Other)
  Sender: FDA-Public Use
  Company Number: PHHY2013GB137121

PATIENT
  Age: 2 Decade
  Sex: Female

DRUGS (16)
  1. TACROLIMUS [Suspect]
     Indication: LIVER TRANSPLANT
     Dosage: 0.5 MG, ALTERNATING DOSE OF 1MG/0.5MG PER DAY INITIALLY
     Dates: start: 20080702
  2. MYCOPHENOLATE MOFETIL [Interacting]
     Indication: LIVER TRANSPLANT
     Dosage: 1 G, BID
     Route: 048
     Dates: start: 20080702
  3. VORICONAZOLE [Interacting]
     Indication: ASPERGILLUS INFECTION
     Dosage: 175 MG, BID
     Dates: start: 20130925, end: 201310
  4. VORICONAZOLE [Interacting]
     Dosage: 150 MG, BID
     Dates: start: 201310
  5. VORICONAZOLE [Interacting]
     Dosage: 175 MG, BID
  6. MYCOPHENOLATE [Concomitant]
  7. VITAMIIN A [Concomitant]
     Indication: CYSTIC FIBROSIS
  8. COLECALCIFEROL [Concomitant]
  9. TOCOPHEROL [Concomitant]
  10. ACETYLCYSTEINE [Concomitant]
  11. ASPIRIN [Concomitant]
  12. CETIRIZINE [Concomitant]
  13. PANCREATIN [Concomitant]
  14. SALBUTAMOL [Concomitant]
  15. BUDESONIDE W/FORMOTEROL FUMARATE [Concomitant]
  16. INSULIN HUMAN [Concomitant]

REACTIONS (6)
  - Renal disorder [Unknown]
  - Lip pain [Recovering/Resolving]
  - Potentiating drug interaction [Unknown]
  - Skin exfoliation [Not Recovered/Not Resolved]
  - Alopecia [Not Recovered/Not Resolved]
  - Stomatitis [Recovering/Resolving]
